FAERS Safety Report 5967576-4 (Version None)
Quarter: 2008Q4

REPORT INFORMATION
  Report Type: 
  Country: None (occurrence: None)
  Receive Date: 20081125
  Receipt Date: 20081119
  Transmission Date: 20090506
  Serious: Yes (Other)
  Sender: FDA-Public Use
  Company Number: CA-PFIZER INC-2008098920

PATIENT
  Age: 67 Year
  Sex: Female

DRUGS (1)
  1. NORVASC [Suspect]
     Indication: HYPERTENSION
     Route: 048

REACTIONS (5)
  - CHEST DISCOMFORT [None]
  - EYE BURNS [None]
  - EYE OEDEMA [None]
  - FACE OEDEMA [None]
  - OCULAR HYPERAEMIA [None]
